FAERS Safety Report 5518605-3 (Version None)
Quarter: 2007Q4

REPORT INFORMATION
  Report Type: 
  Country: None (occurrence: None)
  Receive Date: 20071115
  Receipt Date: 20071108
  Transmission Date: 20080405
  Serious: Yes (Other)
  Sender: FDA-Public Use
  Company Number: US-PFIZER INC-2007094509

PATIENT
  Sex: Female
  Weight: 72 kg

DRUGS (7)
  1. LIPITOR [Suspect]
     Indication: BLOOD CHOLESTEROL INCREASED
     Dates: start: 20071105, end: 20071108
  2. VALSARTAN [Concomitant]
     Indication: HYPERTENSION
  3. ZETIA [Concomitant]
  4. SULFASALAZINE [Concomitant]
  5. VITAMIN CAP [Concomitant]
  6. RED YEAST RICE [Concomitant]
     Dosage: DAILY DOSE:1200MG-FREQ:DAILY
  7. BLACK COHOSH [Concomitant]
     Indication: HOT FLUSH

REACTIONS (3)
  - HYPOKINESIA [None]
  - MYALGIA [None]
  - SENSATION OF HEAVINESS [None]
